FAERS Safety Report 9661220 (Version 1)
Quarter: 2013Q4

REPORT INFORMATION
  Report Type: Spontaneous
  Country: US (occurrence: None)
  Receive Date: 20131030
  Receipt Date: 20131030
  Transmission Date: 20140711
  Serious: No
  Sender: FDA-Public Use
  Company Number: 2013086170

PATIENT
  Sex: Female

DRUGS (2)
  1. FRAGMIN (DALTEPARIN SODIUM) SOLUTION FOR INJECTION [Suspect]
     Indication: THROMBOSIS PROPHYLAXIS
     Dates: start: 2012, end: 2012
  2. HALAVEN [Suspect]
     Indication: BREAST CANCER METASTATIC
     Dates: start: 2011, end: 2012

REACTIONS (5)
  - Nausea [None]
  - Peripheral sensory neuropathy [None]
  - Asthenia [None]
  - Alopecia [None]
  - Arthralgia [None]
